FAERS Safety Report 7589512-X (Version None)
Quarter: 2011Q3

REPORT INFORMATION
  Report Type: 
  Country: None (occurrence: None)
  Receive Date: 20110705
  Receipt Date: 20110625
  Transmission Date: 20111222
  Serious: Yes (Hospitalization, Other)
  Sender: FDA-Public Use
  Company Number: NZ-ROCHE-785717

PATIENT
  Age: 64 Year
  Sex: Male
  Weight: 74.4 kg

DRUGS (12)
  1. COPEGUS [Suspect]
     Dosage: DOSE REDUCED.
     Route: 048
     Dates: start: 20110308
  2. PREDNISONE [Concomitant]
     Route: 048
  3. COPEGUS [Suspect]
     Indication: HEPATITIS C
     Route: 048
     Dates: start: 20101123, end: 20110111
  4. PEGASYS [Suspect]
     Indication: HEPATITIS C
     Route: 058
     Dates: start: 20101123, end: 20110517
  5. COPEGUS [Suspect]
     Route: 048
     Dates: start: 20110503, end: 20110517
  6. CODEINE SULFATE [Concomitant]
  7. HUMALOG [Concomitant]
     Dosage: 10UNITS WITH BREAKFAST AND DINNER.
  8. CARTIA XT [Concomitant]
     Route: 048
  9. PANTOPRAZOLE [Concomitant]
     Route: 048
  10. COPEGUS [Suspect]
     Route: 048
     Dates: start: 20110131
  11. ATENOLOL [Concomitant]
     Route: 048
  12. MYCOPHENOLATE MEFETIL [Concomitant]
     Indication: IMMUNOSUPPRESSANT DRUG THERAPY
     Route: 048

REACTIONS (5)
  - BLOOD UREA INCREASED [None]
  - NEUTROPENIA [None]
  - RENAL IMPAIRMENT [None]
  - ANAEMIA [None]
  - THROMBOCYTOPENIA [None]
